FAERS Safety Report 8251707-X (Version None)
Quarter: 2012Q1

REPORT INFORMATION
  Report Type: 
  Country: None (occurrence: None)
  Receive Date: 20120321
  Receipt Date: 20120123
  Transmission Date: 20120608
  Serious: Yes (Other)
  Sender: FDA-Public Use
  Company Number: 1171436

PATIENT
  Age: 40 Year
  Sex: Female
  Weight: 89.09 kg

DRUGS (1)
  1. CIPROFLOXACIN [Suspect]
     Indication: PREOPERATIVE CARE
     Dosage: 400 MG, X 1 DOSE, INTRAVENOUS DRIP
     Route: 041
     Dates: start: 20120111

REACTIONS (2)
  - INJECTION SITE ERYTHEMA [None]
  - INJECTION SITE PRURITUS [None]
